FAERS Safety Report 14944549 (Version 1)
Quarter: 2018Q2

REPORT INFORMATION
  Report Type: Spontaneous
  Country: NL (occurrence: NL)
  Receive Date: 20180529
  Receipt Date: 20180529
  Transmission Date: 20180711
  Serious: Yes (Other)
  Sender: FDA-Public Use
  Company Number: NL-BEH-2018091029

PATIENT
  Age: 1 Year
  Sex: Male

DRUGS (3)
  1. FACTOR VIII RECOMBINANT (INN) [Suspect]
     Active Substance: ANTIHEMOPHILIC FACTOR, HUMAN RECOMBINANT
     Indication: PROPHYLAXIS
  2. FACTOR VIII RECOMBINANT (INN) [Suspect]
     Active Substance: ANTIHEMOPHILIC FACTOR, HUMAN RECOMBINANT
     Indication: FACTOR VIII DEFICIENCY
     Route: 065
  3. FACTOR VIII RECOMBINANT (INN) [Suspect]
     Active Substance: ANTIHEMOPHILIC FACTOR, HUMAN RECOMBINANT
     Indication: IMMUNE TOLERANCE INDUCTION

REACTIONS (3)
  - Factor VIII inhibition [Unknown]
  - Drug ineffective for unapproved indication [Unknown]
  - Drug ineffective [Unknown]
